FAERS Safety Report 9300413 (Version 2)
Quarter: 2013Q2

REPORT INFORMATION
  Report Type: Spontaneous
  Country: US (occurrence: US)
  Receive Date: 20130521
  Receipt Date: 20130604
  Transmission Date: 20140414
  Serious: Yes (Other)
  Sender: FDA-Public Use
  Company Number: US-PFIZER INC-2013153452

PATIENT
  Age: 27 Year
  Sex: Male
  Weight: 102.04 kg

DRUGS (5)
  1. VIAGRA [Suspect]
     Indication: ERECTILE DYSFUNCTION
     Dosage: 100 MG, AS NEEDED
     Route: 048
  2. VIAGRA [Suspect]
     Dosage: 100 MG, 1/2 TAB AS NEEDED
     Route: 048
     Dates: start: 20130404
  3. LISINOPRIL [Concomitant]
     Indication: HYPERTENSION
     Dosage: 10 MG, 1X/DAY
  4. ANDROGEL [Concomitant]
     Indication: HYPOGONADISM
     Dosage: UNK
     Dates: start: 20130405
  5. METFORMIN [Concomitant]
     Indication: DIABETES MELLITUS
     Dosage: 1000 MG, 2X/DAY

REACTIONS (4)
  - Diabetes mellitus [Unknown]
  - Blood testosterone decreased [Unknown]
  - Infection [Unknown]
  - Nasopharyngitis [Unknown]
